FAERS Safety Report 4528160-2 (Version None)
Quarter: 2004Q4

REPORT INFORMATION
  Report Type: 
  Country: None (occurrence: None)
  Receive Date: 20041215
  Receipt Date: 20041122
  Transmission Date: 20050328
  Serious: Yes (Hospitalization)
  Sender: FDA-Public Use
  Company Number: SE-MERCK-0411SWE00041

PATIENT
  Age: 83 Year
  Sex: Female

DRUGS (7)
  1. VIOXX [Suspect]
     Indication: ARTHRALGIA
     Route: 048
     Dates: start: 20020426, end: 20021201
  2. VIOXX [Suspect]
     Route: 048
     Dates: start: 20021201, end: 20030525
  3. ACETAMINOPHEN [Concomitant]
     Route: 065
  4. CARBIDOPA AND LEVODOPA [Concomitant]
     Route: 065
  5. ETILEFRINE HYDROCHLORIDE [Concomitant]
     Route: 065
  6. PRAMIPEXOLE DIHYDROCHLORIDE [Suspect]
     Route: 065
  7. BENSERAZIDE HYDROCHLORIDE AND LEVODOPA [Concomitant]
     Route: 065

REACTIONS (4)
  - ACUTE MYOCARDIAL INFARCTION [None]
  - ANAEMIA [None]
  - CARDIAC FAILURE [None]
  - HAEMORRHAGE [None]
